FAERS Safety Report 5407951-X (Version None)
Quarter: 2007Q3

REPORT INFORMATION
  Report Type: 
  Country: None (occurrence: None)
  Receive Date: 20070725
  Receipt Date: 20070711
  Transmission Date: 20080115
  Serious: Yes (Other)
  Sender: FDA-Public Use
  Company Number: THYM-11447

PATIENT
  Sex: Male

DRUGS (2)
  1. THYMOGLOBULIN [Suspect]
     Indication: TRANSPLANT
     Dates: start: 20060129, end: 20060129
  2. THYMOGLOBULIN [Suspect]

REACTIONS (6)
  - CHILLS [None]
  - HYPOTENSION [None]
  - INCORRECT DRUG ADMINISTRATION RATE [None]
  - INFUSION RELATED REACTION [None]
  - PULMONARY ARTERIAL PRESSURE INCREASED [None]
  - PYREXIA [None]
